FAERS Safety Report 9012516 (Version 1)
Quarter: 2013Q1

REPORT INFORMATION
  Report Type: Spontaneous
  Country: US (occurrence: US)
  Receive Date: 20130114
  Receipt Date: 20130114
  Transmission Date: 20140127
  Serious: No
  Sender: FDA-Public Use
  Company Number: US-PFIZER INC-2013008962

PATIENT
  Age: 30 Year
  Sex: Female
  Weight: 58.96 kg

DRUGS (8)
  1. CLINDAMYCIN HCL [Suspect]
     Dosage: UNK
  2. FLAGYL [Suspect]
     Dosage: UNK
  3. ROCEPHIN [Suspect]
     Dosage: UNK
  4. BIAXIN [Suspect]
     Dosage: UNK
  5. DOXYCYCLINE HYDROCHLORIDE [Suspect]
     Dosage: UNK
  6. PROZAC [Concomitant]
     Dosage: 40 MG, 1X/DAY
  7. LEVOTHYROXINE [Concomitant]
     Dosage: 0.5 TAB, 1X/DAY
  8. AMBIEN [Concomitant]
     Dosage: 10 MG, HS

REACTIONS (1)
  - Colitis [Unknown]
